FAERS Safety Report 5069248-X (Version None)
Quarter: 2006Q3

REPORT INFORMATION
  Report Type: 
  Country: None (occurrence: None)
  Receive Date: 20060731
  Receipt Date: 20060717
  Transmission Date: 20061208
  Serious: Yes (Disabling, Other)
  Sender: FDA-Public Use
  Company Number: 2006088309

PATIENT
  Age: 52 Year
  Sex: Male

DRUGS (1)
  1. LIPITOR [Suspect]
     Indication: BLOOD CHOLESTEROL INCREASED
     Dosage: 10 MG, DAILY
     Dates: start: 19970101

REACTIONS (13)
  - AMNESIA [None]
  - ARTHROPATHY [None]
  - ASTHENIA [None]
  - BURNING SENSATION [None]
  - CONFUSIONAL STATE [None]
  - DEPRESSION [None]
  - FATIGUE [None]
  - GAIT DISTURBANCE [None]
  - IRRITABILITY [None]
  - MEMORY IMPAIRMENT [None]
  - MYALGIA [None]
  - MYOPATHY [None]
  - NEUROPATHY PERIPHERAL [None]
